FAERS Safety Report 4849516-4 (Version None)
Quarter: 2005Q4

REPORT INFORMATION
  Report Type: 
  Country: None (occurrence: None)
  Receive Date: 20051209
  Receipt Date: 20041105
  Transmission Date: 20060501
  Serious: Yes (Death)
  Sender: FDA-Public Use
  Company Number: RO-ABBOTT-04P-135-0279835-00

PATIENT
  Sex: Male
  Weight: 70 kg

DRUGS (2)
  1. KALETRA [Suspect]
     Indication: HIV INFECTION
     Route: 048
     Dates: start: 20041009, end: 20041103
  2. CLARITHROMYCIN [Concomitant]
     Indication: MYCOBACTERIUM AVIUM COMPLEX INFECTION
     Dates: start: 20041015

REACTIONS (7)
  - DEATH [None]
  - HEPATIC FAILURE [None]
  - HEPATOSPLENOMEGALY [None]
  - LYMPHOMA [None]
  - MYCOBACTERIUM AVIUM COMPLEX INFECTION [None]
  - SHOCK HAEMORRHAGIC [None]
  - THROMBOCYTOPENIA [None]
